FAERS Safety Report 4952398-3 (Version None)
Quarter: 2006Q1

REPORT INFORMATION
  Report Type: 
  Country: None (occurrence: None)
  Receive Date: 20060317
  Receipt Date: 20060307
  Transmission Date: 20060701
  Serious: Yes (Other)
  Sender: FDA-Public Use
  Company Number: 230001K06NLD

PATIENT
  Age: 33 Year
  Sex: Male

DRUGS (2)
  1. REBIF [Suspect]
     Indication: MULTIPLE SCLEROSIS
     Dosage: 44 MG, 3 IN 1 WEEKS
     Dates: start: 20000701
  2. PLANTAGO OVATA [Concomitant]

REACTIONS (1)
  - SPERMATOZOA ABNORMAL [None]
